FAERS Safety Report 21021996 (Version 1)
Quarter: 2022Q2

REPORT INFORMATION
  Report Type: Spontaneous
  Country: US (occurrence: None)
  Receive Date: 20220628
  Receipt Date: 20220628
  Transmission Date: 20220721
  Serious: Yes (Other)
  Sender: FDA-Public Use
  Company Number: None

PATIENT
  Age: 48 Year
  Sex: Male
  Weight: 94.05 kg

DRUGS (11)
  1. PAXLOVID [Suspect]
     Active Substance: NIRMATRELVIR\RITONAVIR
     Indication: COVID-19
     Dosage: OTHER QUANTITY : 3 CAPSULE(S);?FREQUENCY : EVERY 12 HOURS;?
     Route: 048
     Dates: start: 20220627, end: 20220627
  2. AMBIEN [Concomitant]
     Active Substance: ZOLPIDEM TARTRATE
  3. VITAMIN D NOS [Concomitant]
     Active Substance: VITAMIN D NOS
  4. GEMFIBROZIL [Concomitant]
     Active Substance: GEMFIBROZIL
  5. TYLENOL [Concomitant]
     Active Substance: ACETAMINOPHEN
  6. IBUPROFEN [Concomitant]
     Active Substance: IBUPROFEN
  7. DELSYM [Concomitant]
     Active Substance: DEXTROMETHORPHAN
  8. VITAMINS [Concomitant]
     Active Substance: VITAMINS
  9. VITAMIN K [Concomitant]
     Active Substance: PHYTONADIONE
  10. ZINC [Concomitant]
     Active Substance: ZINC
  11. VITAMIN C [Concomitant]
     Active Substance: ASCORBIC ACID

REACTIONS (6)
  - Vomiting [None]
  - Pain [None]
  - Hyperhidrosis [None]
  - Asthenia [None]
  - Hallucination [None]
  - Diarrhoea [None]

NARRATIVE: CASE EVENT DATE: 20220627
